FAERS Safety Report 4448827-4 (Version None)
Quarter: 2004Q3

REPORT INFORMATION
  Report Type: 
  Country: None (occurrence: None)
  Receive Date: 20040909
  Receipt Date: 20040901
  Transmission Date: 20050211
  Serious: Yes (Life-Threatening)
  Sender: FDA-Public Use
  Company Number: HQWYE753801SEP04

PATIENT
  Age: 60 Year
  Sex: Male

DRUGS (3)
  1. AMIODARONE HCL [Suspect]
     Indication: VENTRICULAR TACHYCARDIA
     Dosage: 200 MG 1X PER 1 DAY ORAL
     Route: 048
     Dates: start: 20040811, end: 20040816
  2. WARFARIN (WARFARIN) [Concomitant]
  3. ASPIRIN [Concomitant]

REACTIONS (3)
  - HEPATIC CONGESTION [None]
  - HYPERKALAEMIA [None]
  - HYPOGLYCAEMIA [None]
